FAERS Safety Report 6208751-3 (Version None)
Quarter: 2009Q2

REPORT INFORMATION
  Report Type: 
  Country: None (occurrence: None)
  Receive Date: 20090529
  Receipt Date: 20090518
  Transmission Date: 20091009
  Serious: Yes (Hospitalization)
  Sender: FDA-Public Use
  Company Number: CN-ROCHE-633328

PATIENT
  Age: 45 Year
  Sex: Male

DRUGS (2)
  1. PEG-INTERFERON ALFA 2A (RO 25-8310) [Suspect]
     Indication: HEPATITIS B
     Route: 058
     Dates: start: 20080601, end: 20090422
  2. UNSPECIFIED DRUG [Concomitant]
     Indication: CHOLECYSTITIS
     Dates: start: 20090418

REACTIONS (3)
  - BLOOD BILIRUBIN INCREASED [None]
  - CHOLECYSTITIS [None]
  - CHOLELITHIASIS [None]
